FAERS Safety Report 7340896-7 (Version None)
Quarter: 2011Q1

REPORT INFORMATION
  Report Type: 
  Country: None (occurrence: None)
  Receive Date: 20110309
  Receipt Date: 20100413
  Transmission Date: 20110831
  Serious: No
  Sender: FDA-Public Use
  Company Number: US-ABBOTT-10P-163-0639257-00

PATIENT
  Sex: Female
  Weight: 64.922 kg

DRUGS (2)
  1. LUPRON DEPOT [Suspect]
     Indication: UTERINE LEIOMYOMA
     Dates: start: 20091001, end: 20091201
  2. LUPRON DEPOT [Suspect]
     Indication: UTERINE LEIOMYOMA
     Dates: start: 20100301

REACTIONS (4)
  - INSOMNIA [None]
  - HOT FLUSH [None]
  - MENORRHAGIA [None]
  - ANAEMIA [None]
